FAERS Safety Report 11435938 (Version 1)
Quarter: 2015Q3

REPORT INFORMATION
  Report Type: Spontaneous
  Country: US (occurrence: US)
  Receive Date: 20150821
  Receipt Date: 20150821
  Transmission Date: 20151125
  Serious: No
  Sender: FDA-Public Use
  Company Number: US-ELI_LILLY_AND_COMPANY-US201402002419

PATIENT
  Sex: Male

DRUGS (5)
  1. BACLOFEN. [Concomitant]
     Active Substance: BACLOFEN
  2. BUTIRAN [Concomitant]
  3. CIALIS [Suspect]
     Active Substance: TADALAFIL
     Indication: ERECTILE DYSFUNCTION
     Dosage: 5 MG, QD
     Route: 065
     Dates: start: 20140121, end: 20140204
  4. CIALIS [Suspect]
     Active Substance: TADALAFIL
     Indication: BENIGN PROSTATIC HYPERPLASIA
  5. GILENYA [Concomitant]
     Active Substance: FINGOLIMOD HYDROCHLORIDE

REACTIONS (1)
  - Rosacea [Unknown]

NARRATIVE: CASE EVENT DATE: 20140203
